FAERS Safety Report 19621592 (Version 1)
Quarter: 2021Q3

REPORT INFORMATION
  Report Type: Spontaneous
  Country: US (occurrence: US)
  Receive Date: 20210728
  Receipt Date: 20210728
  Transmission Date: 20211014
  Serious: Yes (Other)
  Sender: FDA-Public Use
  Company Number: US-STRIDES ARCOLAB LIMITED-2021SP025468

PATIENT
  Age: 28 Year
  Sex: Male

DRUGS (3)
  1. PREDNISOLONE. [Suspect]
     Active Substance: PREDNISOLONE
     Indication: CROHN^S DISEASE
     Dosage: 40 MILLIGRAM
     Route: 065
  2. BUPRENORPHINE/NALOXONE [Interacting]
     Active Substance: BUPRENORPHINE\NALOXONE
     Indication: DRUG USE DISORDER
     Dosage: 8/2MG, 3 TIMES DAILY
     Route: 060
  3. PREDNISOLONE. [Interacting]
     Active Substance: PREDNISOLONE
     Dosage: 180 MILLIGRAM
     Route: 065

REACTIONS (2)
  - Drug interaction [Unknown]
  - False negative investigation result [Unknown]
